FAERS Safety Report 6998832-9 (Version None)
Quarter: 2010Q3

REPORT INFORMATION
  Report Type: 
  Country: None (occurrence: None)
  Receive Date: 20100920
  Receipt Date: 20100111
  Transmission Date: 20110219
  Serious: No
  Sender: FDA-Public Use
  Company Number: US-ASTRAZENECA-2009SE21040

PATIENT
  Age: 572 Month
  Sex: Female
  Weight: 122.5 kg

DRUGS (8)
  1. SEROQUEL [Suspect]
     Indication: BIPOLAR DISORDER
     Dosage: 25 TO 100 MG/DAY
     Route: 048
     Dates: start: 20040101, end: 20080101
  2. DEXATRIM [Concomitant]
     Dates: start: 19780101
  3. RISPERDAL [Concomitant]
  4. WELLBUTRIN [Concomitant]
  5. KLONOPIN [Concomitant]
  6. NEURONTIN [Concomitant]
     Dosage: 600 MG IN AM AND 900 MG IN PM
  7. CYMBALTA [Concomitant]
  8. TRAZODONE HCL [Concomitant]

REACTIONS (3)
  - HYPERGLYCAEMIA [None]
  - OBESITY [None]
  - TYPE 2 DIABETES MELLITUS [None]
